FAERS Safety Report 7625026-6 (Version None)
Quarter: 2011Q3

REPORT INFORMATION
  Report Type: 
  Country: None (occurrence: None)
  Receive Date: 20110721
  Receipt Date: 20110711
  Transmission Date: 20111222
  Serious: No
  Sender: FDA-Public Use
  Company Number: US-BIOGENIDEC-2011BI019051

PATIENT
  Sex: Female

DRUGS (3)
  1. DBT (NOS) [Concomitant]
     Indication: PRODUCT USED FOR UNKNOWN INDICATION
  2. FOLIC ACID [Concomitant]
     Indication: PRODUCT USED FOR UNKNOWN INDICATION
  3. TYSABRI [Suspect]
     Indication: MULTIPLE SCLEROSIS
     Route: 042
     Dates: start: 20070315, end: 20101101

REACTIONS (4)
  - URINARY TRACT INFECTION [None]
  - APHASIA [None]
  - COORDINATION ABNORMAL [None]
  - MULTIPLE SCLEROSIS [None]
